FAERS Safety Report 7319586-2 (Version None)
Quarter: 2011Q1

REPORT INFORMATION
  Report Type: 
  Country: None (occurrence: None)
  Receive Date: 20110228
  Receipt Date: 20100603
  Transmission Date: 20110831
  Serious: No
  Sender: FDA-Public Use
  Company Number: A0862733A

PATIENT
  Age: 51 Year
  Sex: Male

DRUGS (7)
  1. GEODON [Concomitant]
  2. POTASSIUM [Concomitant]
  3. KLONOPIN [Concomitant]
  4. LAMICTAL [Suspect]
     Indication: BIPOLAR DISORDER
     Dosage: 100MG PER DAY
     Route: 048
     Dates: start: 20050101
  5. RESTORIL [Concomitant]
  6. CYMBALTA [Concomitant]
  7. ZOCOR [Concomitant]

REACTIONS (3)
  - SKIN DISCOLOURATION [None]
  - OEDEMA PERIPHERAL [None]
  - ILL-DEFINED DISORDER [None]
